FAERS Safety Report 11165707 (Version 1)
Quarter: 2015Q2

REPORT INFORMATION
  Report Type: Spontaneous
  Country: US (occurrence: US)
  Receive Date: 20150604
  Receipt Date: 20150604
  Transmission Date: 20150821
  Serious: Yes (Other)
  Sender: FDA-Public Use
  Company Number: US-ASTRAZENECA-2015SE52933

PATIENT
  Sex: Female
  Weight: 95.3 kg

DRUGS (4)
  1. INSULIN 70/30 [Concomitant]
     Active Substance: INSULIN HUMAN
     Indication: DIABETES MELLITUS
  2. NEXIUM [Suspect]
     Active Substance: ESOMEPRAZOLE MAGNESIUM
     Indication: GASTROOESOPHAGEAL REFLUX DISEASE
     Route: 048
  3. AMLODIPINE [Concomitant]
     Active Substance: AMLODIPINE BESYLATE
     Indication: BLOOD PRESSURE ABNORMAL
  4. ISOSORBIDE [Concomitant]
     Active Substance: ISOSORBIDE
     Indication: CHEST PAIN

REACTIONS (8)
  - Pruritus [Unknown]
  - Constipation [Unknown]
  - Laceration [Unknown]
  - Intentional product misuse [Unknown]
  - Cough [Unknown]
  - Abdominal pain [Unknown]
  - Headache [Unknown]
  - Dyspepsia [Not Recovered/Not Resolved]
